FAERS Safety Report 17015858 (Version 1)
Quarter: 2019Q4

REPORT INFORMATION
  Report Type: Spontaneous
  Country: US (occurrence: US)
  Receive Date: 20191003
  Receipt Date: 20191003
  Transmission Date: 20200122
  Serious: Yes (Hospitalization)
  Sender: FDA-Public Use
  Company Number: None

PATIENT
  Age: 69 Year
  Sex: Female

DRUGS (14)
  1. HUMIRA [Suspect]
     Active Substance: ADALIMUMAB
     Indication: RHEUMATOID ARTHRITIS
     Dosage: ?          OTHER FREQUENCY:Q14 DAYS;?
     Route: 058
     Dates: start: 20151217
  2. VALACYCLOVIR [Concomitant]
     Active Substance: VALACYCLOVIR HYDROCHLORIDE
  3. DULOXETINE. [Concomitant]
     Active Substance: DULOXETINE
  4. ALOPRAZOLAM [Concomitant]
  5. CYANOCOBALAM [Concomitant]
     Active Substance: CYANOCOBALAMIN
  6. CLOPODOGREL [Concomitant]
  7. POT CHLORIDE [Concomitant]
     Active Substance: POTASSIUM CHLORIDE
  8. FUROSEMIDE. [Concomitant]
     Active Substance: FUROSEMIDE
  9. ROSUVASTATIN. [Concomitant]
     Active Substance: ROSUVASTATIN
  10. OMEPRAZOLE. [Concomitant]
     Active Substance: OMEPRAZOLE
  11. INTROGLYCERIN SUB [Concomitant]
  12. CARVEDILOL. [Concomitant]
     Active Substance: CARVEDILOL
  13. ATORVASTATIN [Concomitant]
     Active Substance: ATORVASTATIN
  14. HYDROCO/APAP [Concomitant]
     Active Substance: ACETAMINOPHEN\HYDROCODONE

REACTIONS (2)
  - Therapy cessation [None]
  - Surgery [None]

NARRATIVE: CASE EVENT DATE: 201909
